FAERS Safety Report 22297320 (Version 1)
Quarter: 2023Q2

REPORT INFORMATION
  Report Type: Spontaneous
  Country: GB (occurrence: GB)
  Receive Date: 20230509
  Receipt Date: 20230509
  Transmission Date: 20230721
  Serious: Yes (Other)
  Sender: FDA-Public Use
  Company Number: None

PATIENT
  Age: 75 Year
  Sex: Female
  Weight: 145 kg

DRUGS (3)
  1. GABAPENTIN [Suspect]
     Active Substance: GABAPENTIN
     Indication: Back pain
     Dosage: UNK
     Route: 065
  2. GABAPENTIN [Suspect]
     Active Substance: GABAPENTIN
     Dosage: 300 MILLIGRAM, TABLET
     Route: 065
     Dates: start: 20200101, end: 20221001
  3. GABAPENTIN [Suspect]
     Active Substance: GABAPENTIN
     Indication: Back pain
     Dosage: 300 MILLIGRAM
     Route: 065
     Dates: start: 20210101

REACTIONS (1)
  - Oral pain [Not Recovered/Not Resolved]
